FAERS Safety Report 9719011 (Version 3)
Quarter: 2014Q2

REPORT INFORMATION
  Report Type: Spontaneous
  Country: DE (occurrence: None)
  Receive Date: 20131126
  Receipt Date: 20140521
  Transmission Date: 20141212
  Serious: Yes (Hospitalization, Other)
  Sender: FDA-Public Use
  Company Number: 1311-1492

PATIENT
  Age: 67 Year
  Sex: Male
  Weight: 70 kg

DRUGS (2)
  1. EYLEA (AFLIBERCEPT) (INJECTION) [Suspect]
     Indication: POLYPOIDAL CHOROIDAL VASCULOPATHY
     Dosage: INTRAOCULAR
     Route: 031
     Dates: start: 20121210
  2. EYLEA (AFLIBERCEPT) (INJECTION) [Suspect]
     Indication: AGE-RELATED MACULAR DEGENERATION
     Dosage: INTRAOCULAR
     Route: 031
     Dates: start: 20121210

REACTIONS (3)
  - Retinal haemorrhage [None]
  - Retinal detachment [None]
  - Macular hole [None]
